FAERS Safety Report 4787384-X (Version None)
Quarter: 2005Q4

REPORT INFORMATION
  Report Type: 
  Country: None (occurrence: None)
  Receive Date: 20051003
  Receipt Date: 20050923
  Transmission Date: 20060501
  Serious: Yes (Life-Threatening, Hospitalization)
  Sender: FDA-Public Use
  Company Number: S05-USA-01358-01

PATIENT
  Age: 37 Year
  Sex: Male
  Weight: 86.1834 kg

DRUGS (5)
  1. CAMPRAL [Suspect]
     Indication: ALCOHOLISM
     Dosage: 666 MG TID, PO
     Route: 048
     Dates: start: 20050204, end: 20050228
  2. CAMPRAL [Suspect]
     Indication: ALCOHOLISM
     Dosage: 666 MG TID, PO
     Route: 048
     Dates: start: 20050601
  3. CLORAZEPATE (CLORAZEPATE) [Concomitant]
  4. CELEXA [Concomitant]
  5. AMITRIPTYLINE [Concomitant]

REACTIONS (3)
  - HEPATIC CIRRHOSIS [None]
  - HEPATIC FAILURE [None]
  - HEPATITIS ALCOHOLIC [None]
